FAERS Safety Report 21849577 (Version 2)
Quarter: 2023Q1

REPORT INFORMATION
  Report Type: Spontaneous
  Country: US (occurrence: US)
  Receive Date: 20230111
  Receipt Date: 20230203
  Transmission Date: 20230417
  Serious: No
  Sender: FDA-Public Use
  Company Number: US-ViiV Healthcare Limited-90216

PATIENT
  Sex: Male

DRUGS (3)
  1. CABENUVA [Suspect]
     Active Substance: CABOTEGRAVIR\RILPIVIRINE
     Indication: Product used for unknown indication
     Dosage: UNK, 600/900 MG
     Dates: start: 20221107
  2. CABENUVA [Suspect]
     Active Substance: CABOTEGRAVIR\RILPIVIRINE
     Dosage: UNK, 400MG/600MG
     Dates: start: 20221202
  3. CABENUVA [Suspect]
     Active Substance: CABOTEGRAVIR\RILPIVIRINE
     Dosage: UNK, 400MG/600MG
     Dates: start: 20230106

REACTIONS (14)
  - COVID-19 [Unknown]
  - Rash [Not Recovered/Not Resolved]
  - Skin exfoliation [Unknown]
  - Rash erythematous [Not Recovered/Not Resolved]
  - Rash pruritic [Not Recovered/Not Resolved]
  - Seborrhoeic dermatitis [Recovering/Resolving]
  - Erythema [Unknown]
  - Telangiectasia [Unknown]
  - Xerosis [Recovering/Resolving]
  - Rosacea [Unknown]
  - Papule [Unknown]
  - Perioral dermatitis [Unknown]
  - Tinea manuum [Recovering/Resolving]
  - Hand dermatitis [Recovering/Resolving]

NARRATIVE: CASE EVENT DATE: 20220101
